FAERS Safety Report 15730764 (Version 2)
Quarter: 2019Q1

REPORT INFORMATION
  Report Type: Spontaneous
  Country: US (occurrence: US)
  Receive Date: 20181217
  Receipt Date: 20190313
  Transmission Date: 20190417
  Serious: Yes (Other)
  Sender: FDA-Public Use
  Company Number: US-SA-2018SA340683

PATIENT
  Age: 51 Year
  Sex: Female
  Weight: 163 kg

DRUGS (5)
  1. TAXOTERE [Suspect]
     Active Substance: DOCETAXEL
     Dosage: UNK
     Route: 042
     Dates: start: 20130301, end: 20130301
  2. TAXOTERE [Suspect]
     Active Substance: DOCETAXEL
     Indication: BREAST CANCER
     Dosage: UNK UNK, UNK
     Route: 042
     Dates: start: 201201, end: 201201
  3. PARAPLATIN [Concomitant]
     Active Substance: CARBOPLATIN
  4. HERCEPTIN [Concomitant]
     Active Substance: TRASTUZUMAB
  5. TAXOL [Concomitant]
     Active Substance: PACLITAXEL

REACTIONS (2)
  - Psychological trauma [Unknown]
  - Alopecia [Recovering/Resolving]

NARRATIVE: CASE EVENT DATE: 201309
